FAERS Safety Report 12773946 (Version 3)
Quarter: 2016Q4

REPORT INFORMATION
  Report Type: Report from Study
  Country: None (occurrence: CZ)
  Receive Date: 20160923
  Receipt Date: 20161101
  Transmission Date: 20170207
  Serious: Yes (Death, Hospitalization, Other)
  Sender: FDA-Public Use
  Company Number: CZ-ABBVIE-16K-217-1735570-00

PATIENT
  Age: 71 Year
  Sex: Female
  Weight: 75 kg

DRUGS (9)
  1. HYDROCORTISON [Concomitant]
     Active Substance: HYDROCORTISONE
     Indication: PRODUCT USED FOR UNKNOWN INDICATION
  2. GLUCOPHAGE [Concomitant]
     Active Substance: METFORMIN HYDROCHLORIDE
     Indication: PRODUCT USED FOR UNKNOWN INDICATION
  3. OLAZAX [Concomitant]
     Indication: PRODUCT USED FOR UNKNOWN INDICATION
  4. HUMIRA [Suspect]
     Active Substance: ADALIMUMAB
     Indication: RHEUMATOID ARTHRITIS
     Route: 058
     Dates: start: 20090730, end: 20130726
  5. HYDROCORTISON [Concomitant]
     Active Substance: HYDROCORTISONE
     Indication: PRODUCT USED FOR UNKNOWN INDICATION
     Dosage: 2-1-0
  6. FAMOSAN [Concomitant]
     Indication: PRODUCT USED FOR UNKNOWN INDICATION
     Route: 048
  7. STILNOX [Concomitant]
     Active Substance: ZOLPIDEM TARTRATE
     Indication: PRODUCT USED FOR UNKNOWN INDICATION
     Route: 048
  8. LETROX [Concomitant]
     Active Substance: LEVOTHYROXINE SODIUM
     Indication: PRODUCT USED FOR UNKNOWN INDICATION
     Dosage: 100 RG
     Route: 048
  9. MINIRIN [Concomitant]
     Active Substance: DESMOPRESSIN ACETATE
     Indication: PRODUCT USED FOR UNKNOWN INDICATION
     Dosage: 120 RG, 1.5 - 0 - 1.5

REACTIONS (17)
  - General physical health deterioration [Unknown]
  - Hyperchloraemia [Unknown]
  - Hypernatraemia [Unknown]
  - Localised oedema [Unknown]
  - Clostridium difficile colitis [Unknown]
  - Stomatitis [Unknown]
  - Sudden death [Fatal]
  - Multimorbidity [Fatal]
  - Knee arthroplasty [Unknown]
  - Pituitary cancer metastatic [Unknown]
  - Hypopituitarism [Unknown]
  - Knee arthroplasty [Unknown]
  - Breast cancer stage IV [Unknown]
  - Complication associated with device [Unknown]
  - Hemianopia [Unknown]
  - Disorientation [Unknown]
  - Gingivitis ulcerative [Unknown]

NARRATIVE: CASE EVENT DATE: 2010
